FAERS Safety Report 9777495 (Version 2)
Quarter: 2013Q4

REPORT INFORMATION
  Report Type: Spontaneous
  Country: IT (occurrence: IT)
  Receive Date: 20131221
  Receipt Date: 20131221
  Transmission Date: 20140711
  Serious: Yes (Death, Hospitalization)
  Sender: FDA-Public Use
  Company Number: IT-TEVA-320889ISR

PATIENT
  Age: 52 Year
  Sex: Female

DRUGS (9)
  1. DOCETAXEL [Suspect]
     Indication: BREAST CANCER
     Dosage: 136 MILLIGRAM DAILY;
     Route: 042
     Dates: start: 20120120, end: 20120120
  2. G-CSF (TEVAGRASTIM) [Suspect]
     Indication: BREAST CANCER
     Dosage: 34 MICROGRAM DAILY;
     Route: 058
     Dates: start: 20120125, end: 20120128
  3. EPIRUBICINA CLOROIDRATO [Suspect]
     Indication: BREAST CANCER
     Dosage: 136 MILLIGRAM DAILY;
     Route: 042
     Dates: start: 20120120, end: 20120120
  4. SOLDESAM [Concomitant]
  5. RANIDIL [Concomitant]
  6. ZOFRAN [Concomitant]
     Route: 042
     Dates: start: 20120120, end: 20120120
  7. ZOFRAN [Concomitant]
     Dosage: 8 MILLIGRAM DAILY;
     Dates: start: 20120121
  8. TRIMETON [Concomitant]
  9. EMEND [Concomitant]
     Dates: start: 20120120, end: 20120120

REACTIONS (2)
  - Hypovolaemic shock [Fatal]
  - Intestinal ischaemia [Fatal]
